FAERS Safety Report 10241328 (Version 2)
Quarter: 2014Q3

REPORT INFORMATION
  Report Type: Spontaneous
  Country: US (occurrence: US)
  Receive Date: 20140617
  Receipt Date: 20140907
  Transmission Date: 20150326
  Serious: No
  Sender: FDA-Public Use
  Company Number: US-ASTRAZENECA-2014SE40029

PATIENT
  Age: 55 Year
  Sex: Female
  Weight: 83.9 kg

DRUGS (2)
  1. SEROQUEL XR [Suspect]
     Active Substance: QUETIAPINE FUMARATE
     Indication: BIPOLAR I DISORDER
     Route: 048
  2. SEROQUEL XR [Suspect]
     Active Substance: QUETIAPINE FUMARATE
     Indication: BIPOLAR I DISORDER
     Route: 048
     Dates: start: 2013, end: 2013

REACTIONS (7)
  - Feeling abnormal [Unknown]
  - Somnolence [Unknown]
  - Incorrect dose administered [Unknown]
  - Depression [Unknown]
  - Fatigue [Unknown]
  - Bipolar disorder [Unknown]
  - Irritability [Unknown]

NARRATIVE: CASE EVENT DATE: 2013
